FAERS Safety Report 25423562 (Version 1)
Quarter: 2025Q2

REPORT INFORMATION
  Report Type: Report from Study
  Country: CA (occurrence: CA)
  Receive Date: 20250611
  Receipt Date: 20250611
  Transmission Date: 20250717
  Serious: Yes (Other)
  Sender: TAKEDA
  Company Number: CA-TAKEDA-2025TUS052282

PATIENT
  Sex: Female

DRUGS (12)
  1. VEDOLIZUMAB [Suspect]
     Active Substance: VEDOLIZUMAB
     Indication: Crohn^s disease
  2. VEDOLIZUMAB [Suspect]
     Active Substance: VEDOLIZUMAB
     Dosage: 300 MILLIGRAM, Q4WEEKS
     Dates: start: 20211018
  3. PREDNISONE [Concomitant]
     Active Substance: PREDNISONE
  4. DIVALPROEX SODIUM [Concomitant]
     Active Substance: DIVALPROEX SODIUM
  5. PROPRANOLOL [Concomitant]
     Active Substance: PROPRANOLOL HYDROCHLORIDE
  6. QUETIAPINE [Concomitant]
     Active Substance: QUETIAPINE
  7. LORAZEPAM [Concomitant]
     Active Substance: LORAZEPAM
  8. TOPIRAMATE [Concomitant]
     Active Substance: TOPIRAMATE
  9. VITAMIN D [Concomitant]
     Active Substance: VITAMIN D NOS
  10. CALCIUM [Concomitant]
     Active Substance: CALCIUM
  11. OMEGA 3 [Concomitant]
     Active Substance: CAPSAICIN
     Indication: Arthritis
  12. AMANTADINE [Concomitant]
     Active Substance: AMANTADINE

REACTIONS (1)
  - Polyneuropathy [Not Recovered/Not Resolved]
